FAERS Safety Report 10345258 (Version 1)
Quarter: 2014Q3

REPORT INFORMATION
  Report Type: Spontaneous
  Country: US (occurrence: US)
  Receive Date: 20140728
  Receipt Date: 20140728
  Transmission Date: 20150326
  Serious: Yes (Hospitalization, Other)
  Sender: FDA-Public Use
  Company Number: US-AMGEN-USASP2014055200

PATIENT
  Age: 55 Year
  Sex: Male

DRUGS (1)
  1. ARANESP [Suspect]
     Active Substance: DARBEPOETIN ALFA
     Indication: NEPHROGENIC ANAEMIA
     Dosage: 100 MUG, UNK
     Route: 065

REACTIONS (12)
  - Haemoglobin decreased [Unknown]
  - Vision blurred [Unknown]
  - Drug effect incomplete [Unknown]
  - Fatigue [Unknown]
  - Ileus [Recovered/Resolved]
  - Lethargy [Unknown]
  - Hypotension [Unknown]
  - Dizziness [Unknown]
  - Syncope [Unknown]
  - Convulsion [Unknown]
  - Renal impairment [Unknown]
  - Inappropriate schedule of drug administration [Unknown]
